FAERS Safety Report 11957198 (Version 1)
Quarter: 2016Q1

REPORT INFORMATION
  Report Type: Report from Study
  Country: US (occurrence: US)
  Receive Date: 20160126
  Receipt Date: 20160126
  Transmission Date: 20160526
  Serious: No
  Sender: FDA-Public Use
  Company Number: US-ABBVIE-15K-163-1334644-00

PATIENT
  Age: 59 Year
  Sex: Female

DRUGS (4)
  1. HUMIRA [Suspect]
     Active Substance: ADALIMUMAB
     Route: 065
  2. HUMIRA [Suspect]
     Active Substance: ADALIMUMAB
     Route: 065
  3. HUMIRA [Suspect]
     Active Substance: ADALIMUMAB
     Dosage: DAY 15
     Route: 065
  4. HUMIRA [Suspect]
     Active Substance: ADALIMUMAB
     Indication: CROHN^S DISEASE
     Dosage: DAY 1
     Route: 065
     Dates: start: 20141025, end: 20141025

REACTIONS (7)
  - Drug dose omission [Recovered/Resolved]
  - Injury associated with device [Not Recovered/Not Resolved]
  - Abdominal pain [Recovered/Resolved]
  - Pain in extremity [Not Recovered/Not Resolved]
  - Crohn^s disease [Unknown]
  - Drug effect decreased [Unknown]
  - Injection site pain [Recovered/Resolved]

NARRATIVE: CASE EVENT DATE: 20141025
